FAERS Safety Report 4667925-3 (Version None)
Quarter: 2005Q2

REPORT INFORMATION
  Report Type: 
  Country: None (occurrence: None)
  Receive Date: 20050520
  Receipt Date: 20050510
  Transmission Date: 20051028
  Serious: Yes (Other)
  Sender: FDA-Public Use
  Company Number: GB-JNJFOC-20050504577

PATIENT
  Age: 80 Year
  Sex: Female
  Weight: 60 kg

DRUGS (9)
  1. SPORANOX [Suspect]
     Route: 049
     Dates: start: 20050124, end: 20050128
  2. DIAZEPAM [Concomitant]
     Indication: INSOMNIA
     Route: 049
  3. FLECAINIDE ACETATE [Concomitant]
     Indication: ATRIAL FIBRILLATION
     Route: 049
  4. MOVICOL [Concomitant]
     Route: 049
  5. MOVICOL [Concomitant]
     Route: 049
  6. MOVICOL [Concomitant]
     Route: 049
  7. MOVICOL [Concomitant]
     Indication: CONSTIPATION
     Route: 049
  8. FML [Concomitant]
     Indication: EYE PAIN
     Dosage: PRN
     Route: 047
  9. TOLTERODINE [Concomitant]
     Indication: POLLAKIURIA
     Route: 049

REACTIONS (1)
  - PALPITATIONS [None]
